FAERS Safety Report 16402547 (Version 1)
Quarter: 2019Q2

REPORT INFORMATION
  Report Type: Spontaneous
  Country: US (occurrence: US)
  Receive Date: 20190607
  Receipt Date: 20190607
  Transmission Date: 20190711
  Serious: No
  Sender: FDA-Public Use
  Company Number: US-MALLINCKRODT-T201801904

PATIENT
  Sex: Female
  Weight: 124 kg

DRUGS (1)
  1. HYDROCODONE/ACETAMINOPHEN [Suspect]
     Active Substance: ACETAMINOPHEN\HYDROCODONE
     Indication: PAIN
     Dosage: 1 TABLET EVERY 4 HOURS AS NEEDED FOR PAIN
     Route: 048

REACTIONS (2)
  - Paraesthesia [Unknown]
  - Flushing [Unknown]
